FAERS Safety Report 5521000-4 (Version None)
Quarter: 2007Q4

REPORT INFORMATION
  Report Type: 
  Country: None (occurrence: None)
  Receive Date: 20071119
  Receipt Date: 20071109
  Transmission Date: 20080405
  Serious: Yes (Death, Hospitalization, Other)
  Sender: FDA-Public Use
  Company Number: HQWYE035017JUL03

PATIENT
  Sex: Female

DRUGS (3)
  1. PREMPRO [Suspect]
     Dosage: UNSPECIFIED
     Route: 048
  2. PROVERA [Suspect]
     Dosage: UNKNOWN
     Route: 048
  3. PREMARIN [Suspect]
     Dosage: UNSPECIFIED
     Route: 048

REACTIONS (1)
  - BREAST CANCER METASTATIC [None]
